FAERS Safety Report 5842040-1 (Version None)
Quarter: 2008Q3

REPORT INFORMATION
  Report Type: 
  Country: None (occurrence: None)
  Receive Date: 20080812
  Receipt Date: 20080512
  Transmission Date: 20090109
  Serious: Yes (Congenital Anomaly)
  Sender: FDA-Public Use
  Company Number: US-GILEAD-2008-0016375

PATIENT

DRUGS (4)
  1. ATRIPLA [Suspect]
     Indication: HIV INFECTION
     Route: 064
     Dates: end: 20080108
  2. DYAZIDE [Concomitant]
     Route: 064
  3. KALETRA [Concomitant]
     Route: 064
  4. COMBIVIR [Concomitant]
     Route: 064

REACTIONS (1)
  - ANENCEPHALY [None]
